FAERS Safety Report 4922251-X (Version None)
Quarter: 2006Q1

REPORT INFORMATION
  Report Type: 
  Country: None (occurrence: None)
  Receive Date: 20060224
  Receipt Date: 20051020
  Transmission Date: 20060701
  Serious: Yes (Hospitalization)
  Sender: FDA-Public Use
  Company Number: US-MERCK-0510USA08447

PATIENT
  Age: 65 Year
  Sex: Male

DRUGS (1)
  1. VIOXX [Suspect]
     Route: 048
     Dates: start: 20010509, end: 20010929

REACTIONS (19)
  - ANGINA PECTORIS [None]
  - ASTHENIA [None]
  - ATELECTASIS [None]
  - BRAIN STEM INFARCTION [None]
  - CALCULUS URETERIC [None]
  - CORONARY ARTERY DISEASE [None]
  - DEPRESSION [None]
  - DYSKINESIA [None]
  - FLANK PAIN [None]
  - HYPERGLYCAEMIA [None]
  - HYPERTENSION [None]
  - HYPOAESTHESIA [None]
  - INJURY [None]
  - LYMPHOMA [None]
  - MYOCARDIAL INFARCTION [None]
  - NICOTINE DEPENDENCE [None]
  - PYREXIA [None]
  - TRANSIENT ISCHAEMIC ATTACK [None]
  - URINARY RETENTION [None]
